FAERS Safety Report 16584860 (Version 1)
Quarter: 2019Q3

REPORT INFORMATION
  Report Type: Spontaneous
  Country: US (occurrence: US)
  Receive Date: 20190715
  Receipt Date: 20190715
  Transmission Date: 20191004
  Serious: Yes (Hospitalization)
  Sender: FDA-Public Use
  Company Number: None

PATIENT

DRUGS (1)
  1. BRILLIANT BLUE [Suspect]
     Active Substance: BRILLIANT BLUE
     Indication: ENDOPHTHALMITIS
     Route: 047
     Dates: start: 20190404, end: 20190412

REACTIONS (1)
  - Endophthalmitis [None]

NARRATIVE: CASE EVENT DATE: 20190404
